FAERS Safety Report 5603665-1 (Version None)
Quarter: 2008Q1

REPORT INFORMATION
  Report Type: 
  Country: None (occurrence: None)
  Receive Date: 20080123
  Receipt Date: 20080114
  Transmission Date: 20080703
  Serious: Yes (Hospitalization, Other)
  Sender: FDA-Public Use
  Company Number: 2008SP001180

PATIENT
  Age: 36 Year
  Sex: Male

DRUGS (2)
  1. PEG-INTRON [Suspect]
     Indication: HEPATITIS C
     Dosage: SC
     Route: 058
     Dates: start: 20071009, end: 20071231
  2. REBETOL [Suspect]
     Indication: HEPATITIS C
     Dosage: PO
     Route: 048
     Dates: start: 20071009, end: 20071201

REACTIONS (4)
  - ABDOMINAL PAIN [None]
  - ASTHENIA [None]
  - CHOLECYSTECTOMY [None]
  - SUICIDAL IDEATION [None]
